FAERS Safety Report 12260992 (Version 3)
Quarter: 2016Q3

REPORT INFORMATION
  Report Type: Spontaneous
  Country: US (occurrence: US)
  Receive Date: 20160412
  Receipt Date: 20160823
  Transmission Date: 20161109
  Serious: No
  Sender: FDA-Public Use
  Company Number: US-INCYTE CORPORATION-2016IN000673

PATIENT
  Age: 74 Year
  Sex: Female
  Weight: 64.85 kg

DRUGS (18)
  1. NATTOKINASE [Concomitant]
     Active Substance: NATTOKINASE
     Indication: PRODUCT USED FOR UNKNOWN INDICATION
     Dosage: 1 TWICE DAILY
     Dates: start: 20120423
  2. PROBIOTIC                          /06395501/ [Concomitant]
     Active Substance: BIFIDOBACTERIUM ANIMALIS SUBSP. LACTIS
     Indication: PRODUCT USED FOR UNKNOWN INDICATION
  3. HYDROXYUREA. [Concomitant]
     Active Substance: HYDROXYUREA
     Indication: PRODUCT USED FOR UNKNOWN INDICATION
     Dosage: 200 MG TUESDAY AND SATURDAY
  4. JAKAFI [Suspect]
     Active Substance: RUXOLITINIB
     Dosage: 5 MG Q12HRS
     Route: 048
     Dates: start: 20150606
  5. TRIAMCINOLONE [Concomitant]
     Active Substance: TRIAMCINOLONE
     Indication: RASH
     Dosage: PRN
  6. JAKAFI [Suspect]
     Active Substance: RUXOLITINIB
     Dosage: 10 MG Q12HRS
     Dates: start: 20150527
  7. ISOMETHADONE [Concomitant]
     Indication: PRODUCT USED FOR UNKNOWN INDICATION
  8. NYAMYC [Concomitant]
     Active Substance: NYSTATIN
     Indication: PRODUCT USED FOR UNKNOWN INDICATION
     Dosage: 100000 UNIT/GM BID TO TID
     Dates: start: 20151125
  9. JAKAFI [Suspect]
     Active Substance: RUXOLITINIB
     Dosage: 5 MG, BID
     Route: 048
     Dates: start: 20150615
  10. JAKAFI [Suspect]
     Active Substance: RUXOLITINIB
     Dosage: 5 MG EVERY 12 HOURS
     Route: 048
     Dates: start: 20150826
  11. NYSTATIN. [Concomitant]
     Active Substance: NYSTATIN
     Indication: SKIN DISORDER
     Dosage: BID TO TID
     Dates: start: 20150206
  12. JAKAFI [Suspect]
     Active Substance: RUXOLITINIB
     Indication: POLYCYTHAEMIA VERA
     Dosage: 10 MG, BID
     Route: 048
     Dates: start: 20150519
  13. JAKAFI [Suspect]
     Active Substance: RUXOLITINIB
     Dosage: 5 MG, BID
     Route: 048
     Dates: start: 20150723
  14. JAKAFI [Suspect]
     Active Substance: RUXOLITINIB
     Dosage: 5 MG, QD
     Route: 048
     Dates: start: 20160418, end: 20160529
  15. HYALGAN [Concomitant]
     Active Substance: HYALURONATE SODIUM
     Indication: PRODUCT USED FOR UNKNOWN INDICATION
     Dosage: UNK
  16. ISOMETHEPTENE DICHLORAL APAP [Concomitant]
     Indication: PRODUCT USED FOR UNKNOWN INDICATION
     Dosage: UNK
     Route: 065
  17. IMITREX [Concomitant]
     Active Substance: SUMATRIPTAN SUCCINATE
     Indication: PRODUCT USED FOR UNKNOWN INDICATION
     Dosage: UNK
     Dates: start: 20140827
  18. VITAMIN D3 [Concomitant]
     Active Substance: CHOLECALCIFEROL
     Indication: PRODUCT USED FOR UNKNOWN INDICATION
     Dosage: 5000 IU, QD
     Route: 048
     Dates: start: 20151125

REACTIONS (33)
  - Burning sensation [Not Recovered/Not Resolved]
  - Blood alkaline phosphatase decreased [Unknown]
  - Tinnitus [Unknown]
  - Flatulence [Recovered/Resolved]
  - Platelet count increased [Unknown]
  - Throat irritation [Unknown]
  - Abdominal distension [Unknown]
  - Nausea [Recovered/Resolved]
  - Muscle spasms [Unknown]
  - Fungal infection [Unknown]
  - Increased tendency to bruise [Unknown]
  - Weight increased [Recovered/Resolved]
  - Arthralgia [Recovered/Resolved]
  - Gastrooesophageal reflux disease [Recovered/Resolved]
  - Hypoaesthesia [Not Recovered/Not Resolved]
  - Decreased appetite [Recovered/Resolved]
  - Haemorrhagic diathesis [Unknown]
  - Balance disorder [Recovered/Resolved]
  - Stomatitis [Unknown]
  - Impaired healing [Unknown]
  - Neuropathy peripheral [Unknown]
  - Blood urea increased [Unknown]
  - Photopsia [Recovered/Resolved]
  - Muscular weakness [Recovered/Resolved]
  - Rash [Unknown]
  - Joint stiffness [Unknown]
  - Joint swelling [Unknown]
  - Abdominal pain [Unknown]
  - Erythema [Not Recovered/Not Resolved]
  - Deafness [Unknown]
  - Vomiting [Unknown]
  - Arthropathy [Unknown]
  - Fatigue [Recovered/Resolved]

NARRATIVE: CASE EVENT DATE: 20150826
